FAERS Safety Report 20289085 (Version 1)
Quarter: 2022Q1

REPORT INFORMATION
  Report Type: Spontaneous
  Country: US (occurrence: US)
  Receive Date: 20220104
  Receipt Date: 20220104
  Transmission Date: 20220424
  Serious: Yes (Other)
  Sender: FDA-Public Use
  Company Number: US-AMGEN-USASP2021208095

PATIENT
  Sex: Female

DRUGS (11)
  1. OTEZLA [Suspect]
     Active Substance: APREMILAST
     Indication: Rheumatoid arthritis
     Dosage: 30 MILLIGRAM, BID
     Route: 048
     Dates: start: 20210115
  2. OTEZLA [Suspect]
     Active Substance: APREMILAST
     Indication: Product used for unknown indication
  3. ESTRADIOL [Concomitant]
     Active Substance: ESTRADIOL
     Dosage: 10 MICROGRAM
  4. ACETAMINOPHEN\HYDROCODONE [Concomitant]
     Active Substance: ACETAMINOPHEN\HYDROCODONE
     Dosage: 5 -325 MG
  5. IMITREX [Concomitant]
     Active Substance: SUMATRIPTAN SUCCINATE
     Dosage: 25 MILLIGRAM
  6. INDERAL LA [Concomitant]
     Active Substance: PROPRANOLOL HYDROCHLORIDE
     Dosage: 60 MILLIGRAM
  7. VITAMINS [Concomitant]
     Active Substance: VITAMINS
  8. OLUMIANT [Concomitant]
     Active Substance: BARICITINIB
     Dosage: 2 MILLIGRAM
  9. PRAVASTATIN [Concomitant]
     Active Substance: PRAVASTATIN
     Dosage: 20 MILLIGRAM
  10. TIZANIDINE [Concomitant]
     Active Substance: TIZANIDINE
     Dosage: 2 MILLIGRAM
  11. VALACYCLOVIR [Concomitant]
     Active Substance: VALACYCLOVIR HYDROCHLORIDE
     Dosage: 1 GRAM

REACTIONS (2)
  - Rheumatoid arthritis [Unknown]
  - Off label use [Unknown]

NARRATIVE: CASE EVENT DATE: 20210101
